FAERS Safety Report 7801757-X (Version None)
Quarter: 2011Q4

REPORT INFORMATION
  Report Type: 
  Country: None (occurrence: None)
  Receive Date: 20111004
  Receipt Date: 20110720
  Transmission Date: 20120403
  Serious: Yes (Hospitalization)
  Sender: FDA-Public Use
  Company Number: 2011GW000398

PATIENT
  Age: 86 Year
  Sex: Female
  Weight: 58.0604 kg

DRUGS (3)
  1. MAXAIR [Suspect]
     Indication: ASTHMA
     Dosage: 200 UG;PRN;INH
     Route: 055
     Dates: start: 20080101
  2. MAXAIR [Suspect]
     Indication: CHRONIC OBSTRUCTIVE PULMONARY DISEASE
     Dosage: 200 UG;PRN;INH
     Route: 055
     Dates: start: 20080101
  3. MAXAIR [Suspect]
     Indication: DYSPNOEA
     Dosage: 200 UG;PRN;INH
     Route: 055
     Dates: start: 20080101

REACTIONS (11)
  - DYSPNOEA EXERTIONAL [None]
  - BRAIN NATRIURETIC PEPTIDE INCREASED [None]
  - PULMONARY OEDEMA [None]
  - ANXIETY [None]
  - CHEST PAIN [None]
  - CONDITION AGGRAVATED [None]
  - ANGINA PECTORIS [None]
  - CARDIAC FAILURE CONGESTIVE [None]
  - CHRONIC OBSTRUCTIVE PULMONARY DISEASE [None]
  - ASTHMA [None]
  - CHEST DISCOMFORT [None]
